FAERS Safety Report 24457919 (Version 1)
Quarter: 2024Q4

REPORT INFORMATION
  Report Type: Report from Study
  Country: US (occurrence: US)
  Receive Date: 20241018
  Receipt Date: 20241018
  Transmission Date: 20250115
  Serious: No
  Sender: ROCHE
  Company Number: US-ROCHE-3436749

PATIENT
  Age: 46 Year
  Sex: Male

DRUGS (3)
  1. CATHFLO ACTIVASE [Suspect]
     Active Substance: ALTEPLASE
     Indication: Hyperkalaemia
     Dosage: VIAL, INSTILL 1 MG CATHFLO SOLUTION INTO THE ARTERIAL LUMAN, DATE OF SERVICE: 4 MG ON 23/JUN/2023, 2
     Route: 065
  2. CATHFLO ACTIVASE [Suspect]
     Active Substance: ALTEPLASE
     Indication: Endocarditis
     Dosage: VIAL
     Route: 065
  3. CATHFLO ACTIVASE [Suspect]
     Active Substance: ALTEPLASE
     Indication: Acute kidney injury

REACTIONS (2)
  - Off label use [Unknown]
  - No adverse event [Unknown]
